FAERS Safety Report 4772423-2 (Version None)
Quarter: 2005Q3

REPORT INFORMATION
  Report Type: 
  Country: None (occurrence: None)
  Receive Date: 20050919
  Receipt Date: 20050906
  Transmission Date: 20060218
  Serious: Yes (Hospitalization, Other)
  Sender: FDA-Public Use
  Company Number: US-JNJFOC-20050605523

PATIENT
  Age: 87 Year
  Sex: Female

DRUGS (4)
  1. REMICADE [Suspect]
     Indication: CROHN'S DISEASE
     Route: 042
  2. ZOCOR [Concomitant]
  3. SYNTHROID [Concomitant]
  4. TRIAMCINOLONE CREAM [Concomitant]
     Dosage: AS NEEDED

REACTIONS (3)
  - CROHN'S DISEASE [None]
  - MYCOSIS FUNGOIDES [None]
  - URINARY TRACT INFECTION [None]
